FAERS Safety Report 8307772-4 (Version None)
Quarter: 2012Q2

REPORT INFORMATION
  Report Type: 
  Country: None (occurrence: None)
  Receive Date: 20120424
  Receipt Date: 20120416
  Transmission Date: 20120825
  Serious: Yes (Other)
  Sender: FDA-Public Use
  Company Number: US-BAYER-2012-037616

PATIENT

DRUGS (2)
  1. QUINOLONE NOS [Concomitant]
  2. ALEVE (CAPLET) [Suspect]
     Route: 048

REACTIONS (8)
  - PALPITATIONS [None]
  - ELECTROCARDIOGRAM QT PROLONGED [None]
  - DISCOMFORT [None]
  - INSOMNIA [None]
  - BACK DISORDER [None]
  - PRESYNCOPE [None]
  - DYSPEPSIA [None]
  - SYNCOPE [None]
